FAERS Safety Report 6433196-0 (Version None)
Quarter: 2009Q4

REPORT INFORMATION
  Report Type: 
  Country: None (occurrence: None)
  Receive Date: 20091109
  Receipt Date: 20091103
  Transmission Date: 20100525
  Serious: Yes (Death, Other)
  Sender: FDA-Public Use
  Company Number: PHHY2009GB47801

PATIENT
  Age: 41 Year
  Sex: Female

DRUGS (6)
  1. CLOZAPINE [Suspect]
     Indication: SCHIZOPHRENIA
     Dosage: 750 MG/DAY
     Dates: start: 20000401
  2. ATROPINE [Concomitant]
  3. IMIPRAMINE [Concomitant]
  4. LEVOMEPROMAZINE HYDROCHLORIDE [Concomitant]
  5. PROCYCLIDINE HYDROCHLORIDE [Concomitant]
  6. VALPROATE SODIUM [Concomitant]

REACTIONS (4)
  - ASPIRATION [None]
  - GASTROINTESTINAL HYPOMOTILITY [None]
  - INTESTINAL DILATATION [None]
  - VOMITING [None]
